FAERS Safety Report 17269560 (Version 2)
Quarter: 2020Q2

REPORT INFORMATION
  Report Type: Spontaneous
  Country: ZA (occurrence: ZA)
  Receive Date: 20200114
  Receipt Date: 20200514
  Transmission Date: 20200713
  Serious: Yes (Other)
  Sender: FDA-Public Use
  Company Number: ZA-ASTRAZENECA-2020SE03568

PATIENT
  Sex: Male

DRUGS (5)
  1. TRUSTAN [Suspect]
     Active Substance: ESOMEPRAZOLE
     Route: 048
  2. AZOR [Concomitant]
     Active Substance: AMLODIPINE BESYLATE\OLMESARTAN MEDOXOMIL
  3. DORMONOCT [Concomitant]
     Active Substance: LOPRAZOLAM
  4. RENNIES [Concomitant]
     Indication: DYSPEPSIA
  5. GAVISCON [Concomitant]
     Active Substance: ALUMINUM HYDROXIDE\MAGNESIUM CARBONATE
     Indication: DYSPEPSIA

REACTIONS (4)
  - Feeling abnormal [Recovering/Resolving]
  - Dyspepsia [Recovering/Resolving]
  - Anxiety [Recovering/Resolving]
  - Depressed mood [Recovering/Resolving]
